FAERS Safety Report 7833211-3 (Version None)
Quarter: 2011Q4

REPORT INFORMATION
  Report Type: 
  Country: None (occurrence: None)
  Receive Date: 20111024
  Receipt Date: 20111012
  Transmission Date: 20120403
  Serious: Yes (Other)
  Sender: FDA-Public Use
  Company Number: US-PFIZER INC-2011203609

PATIENT
  Sex: Female
  Weight: 79 kg

DRUGS (3)
  1. NASACORT AQ [Concomitant]
     Indication: HYPERSENSITIVITY
     Dosage: 1 SPRAY IN EACH NOSTRIL
     Route: 045
  2. CETIRIZINE [Concomitant]
     Indication: HYPERSENSITIVITY
     Dosage: 10 MG, DAILY
     Route: 048
  3. PRISTIQ [Suspect]
     Indication: DEPRESSION
     Dosage: 50 MG ONCE DAILY IN THE MORNING
     Route: 048
     Dates: start: 20100101

REACTIONS (2)
  - CSF PRESSURE INCREASED [None]
  - OPTIC NEURITIS [None]
